FAERS Safety Report 4985701-9 (Version None)
Quarter: 2006Q2

REPORT INFORMATION
  Report Type: 
  Country: None (occurrence: None)
  Receive Date: 20060421
  Receipt Date: 20060411
  Transmission Date: 20061013
  Serious: Yes (Life-Threatening)
  Sender: FDA-Public Use
  Company Number: 200610356BYL

PATIENT
  Age: 66 Year
  Sex: Female
  Weight: 65 kg

DRUGS (2)
  1. AVELOX [Suspect]
     Indication: ACUTE TONSILLITIS
     Dosage: 400 MG, QD; ORAL
     Route: 048
     Dates: start: 20060308
  2. ACTRAPID [Concomitant]

REACTIONS (2)
  - ANAPHYLACTIC SHOCK [None]
  - SHOCK [None]
